FAERS Safety Report 20856512 (Version 1)
Quarter: 2022Q2

REPORT INFORMATION
  Report Type: Spontaneous
  Country: US (occurrence: US)
  Receive Date: 20220520
  Receipt Date: 20220520
  Transmission Date: 20220721
  Serious: No
  Sender: FDA-Public Use
  Company Number: US-SA-SAC20220512000365

PATIENT
  Age: 52 Year
  Sex: Male

DRUGS (2)
  1. DUPIXENT [Suspect]
     Active Substance: DUPILUMAB
     Indication: Asthma
     Dosage: 300 MG, QOW
     Route: 058
     Dates: start: 20210324
  2. CYCLOBENZAPRINE [Concomitant]
     Active Substance: CYCLOBENZAPRINE
     Dosage: UNK

REACTIONS (10)
  - Influenza like illness [Unknown]
  - Headache [Unknown]
  - Nausea [Unknown]
  - Fatigue [Unknown]
  - Asthma [Unknown]
  - Sleep disorder [Unknown]
  - Impaired quality of life [Unknown]
  - Pain [Unknown]
  - Rash [Unknown]
  - Discomfort [Unknown]
